FAERS Safety Report 8104338-6 (Version None)
Quarter: 2012Q1

REPORT INFORMATION
  Report Type: 
  Country: None (occurrence: None)
  Receive Date: 20120130
  Receipt Date: 20120120
  Transmission Date: 20120608
  Serious: Yes (Hospitalization)
  Sender: FDA-Public Use
  Company Number: US-BAYER-201038226NA

PATIENT
  Age: 42 Year
  Sex: Female
  Weight: 82.54 kg

DRUGS (8)
  1. PRILOSEC [Concomitant]
     Indication: GASTROOESOPHAGEAL REFLUX DISEASE
  2. LEVAQUIN [Concomitant]
  3. ALLEGRA [Concomitant]
     Indication: SEASONAL ALLERGY
  4. ASPIRIN [Concomitant]
     Dosage: UNK UNK, QD
  5. YASMIN [Suspect]
     Dosage: UNK
     Route: 048
     Dates: start: 20000101
  6. IBUPROFEN [Concomitant]
  7. NEXIUM [Concomitant]
     Indication: GASTROOESOPHAGEAL REFLUX DISEASE
  8. PROGESTERONE [Concomitant]
     Route: 048

REACTIONS (3)
  - INJURY [None]
  - THROMBOPHLEBITIS SUPERFICIAL [None]
  - THROMBOSIS [None]
